FAERS Safety Report 17537863 (Version 1)
Quarter: 2020Q1

REPORT INFORMATION
  Report Type: Spontaneous
  Country: JP (occurrence: JP)
  Receive Date: 20200313
  Receipt Date: 20200313
  Transmission Date: 20200409
  Serious: Yes (Other)
  Sender: FDA-Public Use
  Company Number: JP-PFIZER INC-2020105027

PATIENT

DRUGS (2)
  1. THYRADIN-S [Interacting]
     Active Substance: LEVOTHYROXINE
     Dosage: UNK
     Route: 048
  2. JZOLOFT [Suspect]
     Active Substance: SERTRALINE HYDROCHLORIDE
     Dosage: UNK
     Route: 048

REACTIONS (2)
  - Thyroid hormones decreased [Unknown]
  - Drug interaction [Unknown]
